FAERS Safety Report 25013607 (Version 1)
Quarter: 2025Q1

REPORT INFORMATION
  Report Type: Spontaneous
  Country: US (occurrence: None)
  Receive Date: 20250226
  Receipt Date: 20250226
  Transmission Date: 20250409
  Serious: Yes (Hospitalization)
  Sender: FDA-CTU
  Company Number: None

PATIENT
  Age: 67 Year
  Sex: Female

DRUGS (12)
  1. ENVARSUS XR [Suspect]
     Active Substance: TACROLIMUS
     Indication: Renal transplant
     Dosage: 1 TABLET DAILY ORAL
     Route: 048
     Dates: start: 20220504
  2. ENVARSUS XR [Suspect]
     Active Substance: TACROLIMUS
     Indication: Renal transplant
     Dosage: 1 TABLET DAILY ORAL
     Route: 048
     Dates: start: 20220504
  3. CYMBALTA 30MG CAPSULES [Concomitant]
  4. GLIPIZIDE ER 2.5MG TABLETS [Concomitant]
  5. GABAPENTI N 300MG CAPSULES [Concomitant]
  6. ONE A DAY WOMEN ACTIVE MB TAB 50^S [Concomitant]
  7. ROSUVASTATIN [Concomitant]
     Active Substance: ROSUVASTATIN
  8. COLACE 1 00MG CAPSULES [Concomitant]
  9. CYCLOBENZAPRINE HYDROCHLORIDE [Concomitant]
     Active Substance: CYCLOBENZAPRINE HYDROCHLORIDE
  10. FLUCONAZOLE [Concomitant]
     Active Substance: FLUCONAZOLE
  11. DILAUDID 2MG TABLETS [Concomitant]
  12. HYOSCYAMINE [Concomitant]
     Active Substance: HYOSCYAMINE

REACTIONS (1)
  - Pneumonia [None]

NARRATIVE: CASE EVENT DATE: 20250224
